FAERS Safety Report 6443098-1 (Version None)
Quarter: 2009Q4

REPORT INFORMATION
  Report Type: 
  Country: None (occurrence: None)
  Receive Date: 20091117
  Receipt Date: 20091106
  Transmission Date: 20100525
  Serious: Yes (Other)
  Sender: FDA-Public Use
  Company Number: B0598926A

PATIENT
  Age: 42 Year
  Sex: Female

DRUGS (4)
  1. NICOTINE [Suspect]
  2. CLOZARIL [Suspect]
     Indication: SCHIZOPHRENIA
     Dates: start: 19940818
  3. CLOZARIL [Suspect]
  4. NICORETTE [Concomitant]

REACTIONS (3)
  - DRUG INTERACTION [None]
  - OROPHARYNGEAL PAIN [None]
  - SCHIZOPHRENIA [None]
